FAERS Safety Report 14929213 (Version 2)
Quarter: 2018Q3

REPORT INFORMATION
  Report Type: Report from Study
  Country: IT (occurrence: IT)
  Receive Date: 20180523
  Receipt Date: 20180813
  Transmission Date: 20181010
  Serious: Yes (Other)
  Sender: FDA-Public Use
  Company Number: IT-GLAXOSMITHKLINE-IT2018087132

PATIENT
  Age: 32 Year
  Sex: Female

DRUGS (1)
  1. RANITIDINE HYDROCHLORIDE. [Suspect]
     Active Substance: RANITIDINE HYDROCHLORIDE
     Indication: DRUG HYPERSENSITIVITY
     Dosage: 100 MG, UNK
     Route: 042
     Dates: start: 20180328, end: 20180328

REACTIONS (1)
  - Pruritus generalised [Recovered/Resolved]

NARRATIVE: CASE EVENT DATE: 20180328
